FAERS Safety Report 14062109 (Version 1)
Quarter: 2017Q4

REPORT INFORMATION
  Report Type: Spontaneous
  Country: US (occurrence: US)
  Receive Date: 20171009
  Receipt Date: 20171009
  Transmission Date: 20180321
  Serious: No
  Sender: FDA-Public Use
  Company Number: US-PFIZER INC-2017430556

PATIENT
  Age: 45 Year
  Sex: Female
  Weight: 46.95 kg

DRUGS (1)
  1. IBRANCE [Suspect]
     Active Substance: PALBOCICLIB
     Indication: BREAST CANCER METASTATIC
     Dosage: 125 MG, CYCLIC (ONCE A DAY  21 DAYS ON AND 7 DAYS OFF)
     Route: 048
     Dates: start: 201608

REACTIONS (5)
  - Arthralgia [Unknown]
  - Pain in extremity [Unknown]
  - Dysstasia [Unknown]
  - Neoplasm progression [Unknown]
  - Bone pain [Unknown]

NARRATIVE: CASE EVENT DATE: 201707
